FAERS Safety Report 16941121 (Version 1)
Quarter: 2019Q4

REPORT INFORMATION
  Report Type: Spontaneous
  Country: US (occurrence: US)
  Receive Date: 20191019
  Receipt Date: 20191019
  Transmission Date: 20200122
  Serious: Yes (Other)
  Sender: FDA-Public Use
  Company Number: None

PATIENT
  Age: 24 Year
  Sex: Female
  Weight: 72 kg

DRUGS (2)
  1. SCOPOLAMINE TRANSDERMAL PATCH [Suspect]
     Active Substance: SCOPOLAMINE
     Indication: NAUSEA
     Dosage: ?          QUANTITY:1 PATCH(ES);OTHER FREQUENCY:1P 24 HRS B4 CSEC;?
     Route: 062
     Dates: start: 20191009, end: 20191010
  2. SCOPOLAMINE TRANSDERMAL PATCH [Suspect]
     Active Substance: SCOPOLAMINE
     Indication: CAESAREAN SECTION
     Dosage: ?          QUANTITY:1 PATCH(ES);OTHER FREQUENCY:1P 24 HRS B4 CSEC;?
     Route: 062
     Dates: start: 20191009, end: 20191010

REACTIONS (8)
  - Blindness unilateral [None]
  - Disorientation [None]
  - Feeling drunk [None]
  - Gait disturbance [None]
  - Maternal exposure during pregnancy [None]
  - Foetal exposure during pregnancy [None]
  - Dizziness [None]
  - Mydriasis [None]

NARRATIVE: CASE EVENT DATE: 20191009
